FAERS Safety Report 7624033-7 (Version None)
Quarter: 2011Q3

REPORT INFORMATION
  Report Type: 
  Country: None (occurrence: None)
  Receive Date: 20110720
  Receipt Date: 20110714
  Transmission Date: 20111222
  Serious: Yes (Life-Threatening, Hospitalization, Disabling)
  Sender: FDA-Public Use
  Company Number: US-MERCK-1107USA02203

PATIENT

DRUGS (3)
  1. RANEXA [Suspect]
     Route: 065
  2. RANEXA [Suspect]
     Route: 065
  3. ZOCOR [Suspect]
     Indication: BLOOD CHOLESTEROL INCREASED
     Route: 048

REACTIONS (4)
  - MICTURITION DISORDER [None]
  - RENAL IMPAIRMENT [None]
  - ADVERSE EVENT [None]
  - RHABDOMYOLYSIS [None]
